FAERS Safety Report 24344331 (Version 2)
Quarter: 2024Q4

REPORT INFORMATION
  Report Type: Spontaneous
  Country: JP (occurrence: JP)
  Receive Date: 20240920
  Receipt Date: 20241009
  Transmission Date: 20250115
  Serious: No
  Sender: GALDERMA
  Company Number: JP-GALDERMA-JP2024014049

PATIENT

DRUGS (7)
  1. NEMOLIZUMAB [Suspect]
     Active Substance: NEMOLIZUMAB
     Indication: Dermatitis atopic
     Dosage: 30 MILLIGRAM PER 4 WEEKS
     Route: 058
     Dates: start: 20240731, end: 20240731
  2. NEMOLIZUMAB [Suspect]
     Active Substance: NEMOLIZUMAB
     Dosage: 30 MILLIGRAM PER 4 WEEKS
     Route: 058
     Dates: start: 20240828, end: 20240828
  3. PREDNISOLONE VALERATE ACETATE [Concomitant]
     Active Substance: PREDNISOLONE VALERATE ACETATE
     Indication: Dermatitis atopic
     Dosage: 25 MILLIGRAM
     Route: 061
     Dates: start: 20240408
  4. GLYCOSAMINOGLYCANS [Concomitant]
     Active Substance: GLYCOSAMINOGLYCANS
     Indication: Dermatitis atopic
     Dosage: UNK
     Route: 061
     Dates: start: 20240408
  5. VOALLA [Concomitant]
     Indication: Dermatitis atopic
     Dosage: UNK
     Route: 061
     Dates: start: 20240408
  6. LORATADINE [Concomitant]
     Active Substance: LORATADINE
     Indication: Dermatitis atopic
     Dosage: 10 MILLIGRAM
     Route: 048
     Dates: start: 20240408
  7. FLUTICASONE FUROATE [Concomitant]
     Active Substance: FLUTICASONE FUROATE
     Indication: Product used for unknown indication
     Dosage: 3 MILLIGRAM
     Route: 045

REACTIONS (1)
  - Dermatitis atopic [Recovered/Resolved with Sequelae]

NARRATIVE: CASE EVENT DATE: 20240814
